FAERS Safety Report 5534039-X (Version None)
Quarter: 2007Q4

REPORT INFORMATION
  Report Type: 
  Country: None (occurrence: None)
  Receive Date: 20071205
  Receipt Date: 20071127
  Transmission Date: 20080405
  Serious: Yes (Hospitalization, Other)
  Sender: FDA-Public Use
  Company Number: PHBS2007BE19051

PATIENT
  Age: 63 Year
  Sex: Female

DRUGS (6)
  1. LAMISIL [Suspect]
     Indication: TINEA PEDIS
     Dosage: UNK, UNK
     Route: 048
     Dates: start: 20070720, end: 20070814
  2. LAMISIL [Suspect]
     Route: 061
  3. ZESTRIL [Concomitant]
  4. STAPHYCID [Suspect]
     Indication: SUPERINFECTION
     Route: 065
  5. CIPROFLOXACIN [Suspect]
     Indication: LOCALISED INFECTION
     Dosage: 500 MG, BID
     Route: 065
  6. FURADANTIN [Suspect]
     Indication: URINARY TRACT INFECTION
     Route: 065

REACTIONS (23)
  - ALANINE AMINOTRANSFERASE INCREASED [None]
  - ARTHRALGIA [None]
  - ASPARTATE AMINOTRANSFERASE INCREASED [None]
  - BILIRUBIN CONJUGATED INCREASED [None]
  - BLOOD ALKALINE PHOSPHATASE INCREASED [None]
  - BLOOD BILIRUBIN INCREASED [None]
  - BLOOD BILIRUBIN UNCONJUGATED INCREASED [None]
  - BLOOD LACTATE DEHYDROGENASE INCREASED [None]
  - CHOLESTASIS [None]
  - GAMMA-GLUTAMYLTRANSFERASE INCREASED [None]
  - HEADACHE [None]
  - HEPATIC NECROSIS [None]
  - HEPATITIS TOXIC [None]
  - HEPATOTOXICITY [None]
  - JAUNDICE [None]
  - LOCALISED INFECTION [None]
  - MYALGIA [None]
  - PAIN IN EXTREMITY [None]
  - PRURITUS [None]
  - PYREXIA [None]
  - RED BLOOD CELL SEDIMENTATION RATE INCREASED [None]
  - RENAL PAIN [None]
  - SUPERINFECTION [None]
